FAERS Safety Report 6575361-8 (Version None)
Quarter: 2010Q1

REPORT INFORMATION
  Report Type: 
  Country: None (occurrence: None)
  Receive Date: 20100209
  Receipt Date: 20100119
  Transmission Date: 20100710
  Serious: Yes (Other)
  Sender: FDA-Public Use
  Company Number: GB-JNJFOC-20100200515

PATIENT

DRUGS (12)
  1. ACETAMINOPHEN AND CODEINE PHOSPHATE [Suspect]
     Indication: DRUG USE FOR UNKNOWN INDICATION
     Dosage: } 8 TABLETS
     Route: 065
  2. MORPHINE SULFATE [Suspect]
     Indication: DRUG USE FOR UNKNOWN INDICATION
     Route: 065
  3. PENICILLAMINE [Concomitant]
  4. PREDNISOLONE [Concomitant]
  5. PROPRANOLOL [Concomitant]
  6. PIZOTIFEN [Concomitant]
  7. PROTHIADEN [Concomitant]
  8. VITAMIN D [Concomitant]
  9. VITAMIN B6 [Concomitant]
  10. VERAPAMIL [Concomitant]
  11. LISINOPRIL [Concomitant]
  12. BETAHISTINE [Concomitant]

REACTIONS (4)
  - DEAFNESS NEUROSENSORY [None]
  - MACROCYTOSIS [None]
  - MEDICATION ERROR [None]
  - TINNITUS [None]
